FAERS Safety Report 14625902 (Version 3)
Quarter: 2018Q3

REPORT INFORMATION
  Report Type: Spontaneous
  Country: US (occurrence: US)
  Receive Date: 20180312
  Receipt Date: 20180806
  Transmission Date: 20181010
  Serious: Yes (Other)
  Sender: FDA-Public Use
  Company Number: US-009507513-1803USA002169

PATIENT

DRUGS (2)
  1. REBETOL [Suspect]
     Active Substance: RIBAVIRIN
     Indication: HEPATITIS C
     Dosage: 200 MG, BID
     Route: 048
  2. LEDIPASVIR (+) SOFOSBUVIR [Concomitant]
     Active Substance: LEDIPASVIR\SOFOSBUVIR
     Indication: HEPATITIS C
     Dosage: 1 TABLET (400/90 MG), QD
     Route: 048

REACTIONS (1)
  - Anaemia [Unknown]
